FAERS Safety Report 20135140 (Version 1)
Quarter: 2021Q4

REPORT INFORMATION
  Report Type: Spontaneous
  Country: US (occurrence: None)
  Receive Date: 20211130
  Receipt Date: 20211130
  Transmission Date: 20220303
  Serious: Yes (Hospitalization)
  Sender: FDA-Public Use
  Company Number: None

PATIENT
  Sex: Female

DRUGS (22)
  1. CIMZIA [Suspect]
     Active Substance: CERTOLIZUMAB PEGOL
     Indication: Rheumatoid arthritis
     Dosage: OTHER FREQUENCY : ONCE EVERY MONTH;?
     Route: 058
     Dates: start: 20200820
  2. ABILIFY [Concomitant]
     Active Substance: ARIPIPRAZOLE
  3. ALBUTEROL [Concomitant]
     Active Substance: ALBUTEROL
  4. ARAVA [Concomitant]
     Active Substance: LEFLUNOMIDE
  5. BIOTIN [Concomitant]
     Active Substance: BIOTIN
  6. BUMETANIDE [Concomitant]
     Active Substance: BUMETANIDE
  7. CLONAZEPAM [Concomitant]
     Active Substance: CLONAZEPAM
  8. DEXILANT [Concomitant]
     Active Substance: DEXLANSOPRAZOLE
  9. EFFEXOR XR [Concomitant]
     Active Substance: VENLAFAXINE HYDROCHLORIDE
  10. ELIQUIS [Concomitant]
     Active Substance: APIXABAN
  11. ERGOCAL [Concomitant]
  12. FOLIC ACID [Concomitant]
     Active Substance: FOLIC ACID
  13. GABAPENTIN [Concomitant]
     Active Substance: GABAPENTIN
  14. ACETAMINOPHEN\HYDROCODONE [Concomitant]
     Active Substance: ACETAMINOPHEN\HYDROCODONE
  15. LIOTHYRONINE [Concomitant]
     Active Substance: LIOTHYRONINE
  16. METFORMIN [Concomitant]
     Active Substance: METFORMIN HYDROCHLORIDE
  17. METHOTREXATE [Concomitant]
     Active Substance: METHOTREXATE
  18. MULTI-VITAMIN [Concomitant]
     Active Substance: .ALPHA.-TOCOPHEROL ACETATE, DL-\ASCORBIC ACID\CYANOCOBALAMIN\FLUORIDE ION\FOLIC ACID\NIACIN\PYRIDOXI
  19. MYRVETRIQ [Concomitant]
  20. NASONEX [Concomitant]
     Active Substance: MOMETASONE FUROATE
  21. PREDNISONE; SPIRONLACTONE [Concomitant]
  22. PROBIOTIC; SOTALOL [Concomitant]

REACTIONS (4)
  - COVID-19 [None]
  - Condition aggravated [None]
  - Infection [None]
  - Urinary tract infection [None]
